FAERS Safety Report 4796819-8 (Version None)
Quarter: 2005Q3

REPORT INFORMATION
  Report Type: 
  Country: None (occurrence: None)
  Receive Date: 20050916
  Receipt Date: 20050613
  Transmission Date: 20060218
  Serious: Yes (Other)
  Sender: FDA-Public Use
  Company Number: US-JNJFOC-20050501584

PATIENT
  Age: 23 Year
  Sex: Female

DRUGS (7)
  1. TOPAMAX [Suspect]
     Indication: AFFECTIVE DISORDER
     Dosage: 125 MG, IN 1 DAY, ORAL;  100 MG, 2 IN 1 DAY, ORAL
     Route: 048
     Dates: start: 20050428, end: 20050429
  2. TOPAMAX [Suspect]
     Indication: AFFECTIVE DISORDER
     Dosage: 125 MG, IN 1 DAY, ORAL;  100 MG, 2 IN 1 DAY, ORAL
     Route: 048
     Dates: start: 20050401
  3. TRAZODONE HCL [Concomitant]
  4. SYNTHYROID (LEVOTHYROXINE SODIUM) TABLETS [Concomitant]
  5. COUMADIN [Concomitant]
  6. LEXAPRO [Concomitant]
  7. SYNAREL [Concomitant]

REACTIONS (6)
  - ASTHENIA [None]
  - DIFFICULTY IN WALKING [None]
  - DYSARTHRIA [None]
  - EXPRESSIVE LANGUAGE DISORDER [None]
  - HYPOAESTHESIA [None]
  - OVERDOSE [None]
